FAERS Safety Report 18930734 (Version 3)
Quarter: 2021Q2

REPORT INFORMATION
  Report Type: Spontaneous
  Country: NL (occurrence: NL)
  Receive Date: 20210224
  Receipt Date: 20210418
  Transmission Date: 20210717
  Serious: Yes (Death, Other)
  Sender: FDA-Public Use
  Company Number: NL-ALXN-A202102428

PATIENT
  Age: 49 Year
  Sex: Female

DRUGS (3)
  1. SOLIRIS [Suspect]
     Active Substance: ECULIZUMAB
     Indication: OFF LABEL USE
     Dosage: 900 MG, QW
     Route: 042
  2. SOLIRIS [Suspect]
     Active Substance: ECULIZUMAB
     Indication: TRANSPLANT
  3. SOLIRIS [Suspect]
     Active Substance: ECULIZUMAB
     Indication: THROMBOTIC MICROANGIOPATHY

REACTIONS (6)
  - Off label use [Unknown]
  - BK virus infection [Fatal]
  - Renal failure [Fatal]
  - Cystitis haemorrhagic [Fatal]
  - Cytomegalovirus viraemia [Fatal]
  - Stress [Unknown]
